FAERS Safety Report 21139972 (Version 1)
Quarter: 2022Q3

REPORT INFORMATION
  Report Type: Spontaneous
  Country: US (occurrence: US)
  Receive Date: 20220728
  Receipt Date: 20220728
  Transmission Date: 20221026
  Serious: No
  Sender: FDA-Public Use
  Company Number: US-BRISTOL-MYERS SQUIBB COMPANY-2022-071490

PATIENT
  Age: 55 Year
  Sex: Male
  Weight: 66.04 kg

DRUGS (1)
  1. INREBIC [Suspect]
     Active Substance: FEDRATINIB HYDROCHLORIDE
     Indication: Thrombocytosis
     Route: 048
     Dates: start: 20220309

REACTIONS (1)
  - Abdominal pain upper [Unknown]
